FAERS Safety Report 4802269-8 (Version None)
Quarter: 2005Q4

REPORT INFORMATION
  Report Type: 
  Country: None (occurrence: None)
  Receive Date: 20051012
  Receipt Date: 20050930
  Transmission Date: 20060501
  Serious: Yes (Other)
  Sender: FDA-Public Use
  Company Number: 217665

PATIENT
  Age: 66 Year
  Sex: Female

DRUGS (1)
  1. RAPTIVA [Suspect]
     Indication: PSORIASIS
     Dosage: 0.5 ML, 1/WEEK. SUBCUTANEOUS
     Route: 058
     Dates: start: 20040303, end: 20050909

REACTIONS (2)
  - BLADDER CANCER [None]
  - HAEMATURIA [None]
